FAERS Safety Report 13114286 (Version 1)
Quarter: 2017Q1

REPORT INFORMATION
  Report Type: Spontaneous
  Country: US (occurrence: US)
  Receive Date: 20170113
  Receipt Date: 20170113
  Transmission Date: 20170428
  Serious: Yes (Hospitalization, Other)
  Sender: FDA-Public Use
  Company Number: US-009507513-1701USA001487

PATIENT
  Age: 49 Year
  Sex: Female
  Weight: 140.6 kg

DRUGS (7)
  1. LYRICA [Suspect]
     Active Substance: PREGABALIN
     Indication: NEUROPATHY PERIPHERAL
     Dosage: 100 MG (1 CAPSULE), BID
     Route: 048
     Dates: end: 201612
  2. LYRICA [Suspect]
     Active Substance: PREGABALIN
     Dosage: 200 MG, BID
     Route: 048
     Dates: start: 201612
  3. DULOXETINE HYDROCHLORIDE. [Concomitant]
     Active Substance: DULOXETINE HYDROCHLORIDE
     Indication: ADJUVANT THERAPY
     Dosage: 30 MG, QD
     Dates: start: 201612
  4. LASIX [Concomitant]
     Active Substance: FUROSEMIDE
     Indication: SWELLING
     Dosage: 80 MG (40 MG, BID), AS NEEDED
     Dates: start: 201610
  5. VALIUM [Concomitant]
     Active Substance: DIAZEPAM
     Indication: ANXIETY
     Dosage: 5 MG, BID
     Dates: start: 2006
  6. NORCO [Concomitant]
     Active Substance: ACETAMINOPHEN\HYDROCODONE BITARTRATE
     Indication: PAIN
     Dosage: 6 TABLETS (1 TABLET EVERY 4 HOURS), AS NEEDED, USUSALLY TAKES 4 TABLETS A DAY
     Dates: start: 2006
  7. COZAAR [Suspect]
     Active Substance: LOSARTAN POTASSIUM
     Indication: HYPERTENSION
     Dosage: 25 MG, ONCE DAILY
     Route: 048
     Dates: start: 201612

REACTIONS (2)
  - Spinal fracture [Recovering/Resolving]
  - Fall [Unknown]

NARRATIVE: CASE EVENT DATE: 20161208
